FAERS Safety Report 8400139-X (Version None)
Quarter: 2012Q2

REPORT INFORMATION
  Report Type: 
  Country: None (occurrence: None)
  Receive Date: 20120531
  Receipt Date: 20120530
  Transmission Date: 20120825
  Serious: Yes (Hospitalization, Other)
  Sender: FDA-Public Use
  Company Number: IT-PFIZER INC-2012073519

PATIENT
  Age: 89 Year
  Sex: Male

DRUGS (1)
  1. VIAGRA [Suspect]
     Dosage: 25 MG, SINGLE
     Route: 048
     Dates: start: 20111120

REACTIONS (3)
  - ISCHAEMIC STROKE [None]
  - DYSARTHRIA [None]
  - CONFUSIONAL STATE [None]
